FAERS Safety Report 21391363 (Version 3)
Quarter: 2022Q4

REPORT INFORMATION
  Report Type: Spontaneous
  Country: CO (occurrence: CO)
  Receive Date: 20220929
  Receipt Date: 20221103
  Transmission Date: 20230113
  Serious: No
  Sender: FDA-Public Use
  Company Number: CO-PFIZER INC-202200451376

PATIENT
  Age: 11 Year
  Sex: Female

DRUGS (1)
  1. GENOTROPIN [Suspect]
     Active Substance: SOMATROPIN
     Dosage: 1.8 MG
     Route: 058
     Dates: start: 202202

REACTIONS (4)
  - Device failure [Unknown]
  - Device delivery system issue [Unknown]
  - Device physical property issue [Unknown]
  - Device information output issue [Unknown]
